FAERS Safety Report 6628493-X (Version None)
Quarter: 2010Q1

REPORT INFORMATION
  Report Type: 
  Country: None (occurrence: None)
  Receive Date: 20100311
  Receipt Date: 20100218
  Transmission Date: 20100710
  Serious: Yes (Death)
  Sender: FDA-Public Use
  Company Number: US-ROCHE-681943

PATIENT
  Sex: Female

DRUGS (1)
  1. MYCOPHENOLATE MOFETIL [Suspect]
     Dosage: LAST DOSE RECEIVED IN SEPTEMBER 2009.
     Route: 065
     Dates: start: 19900101, end: 20090901

REACTIONS (3)
  - CEREBROVASCULAR ACCIDENT [None]
  - DEMENTIA [None]
  - FAILURE TO THRIVE [None]
